FAERS Safety Report 6150685-7 (Version None)
Quarter: 2009Q2

REPORT INFORMATION
  Report Type: 
  Country: None (occurrence: None)
  Receive Date: 20090408
  Receipt Date: 20090408
  Transmission Date: 20091009
  Serious: Yes (Other)
  Sender: FDA-Public Use
  Company Number: None

PATIENT
  Age: 28 Year
  Sex: Female
  Weight: 58.9676 kg

DRUGS (5)
  1. PROVIGIL [Suspect]
     Indication: FATIGUE
     Dosage: 1 TABLET DAILY PO
     Route: 048
     Dates: start: 20090204, end: 20090206
  2. CYMBALTA [Concomitant]
  3. SYNTHROID [Concomitant]
  4. IBUPROFEN -OTC- [Concomitant]
  5. DIPHENHYDRAMINE -OTC- [Concomitant]

REACTIONS (4)
  - ATAXIA [None]
  - HEADACHE [None]
  - MUSCLE SPASMS [None]
  - VISION BLURRED [None]
